APPROVED DRUG PRODUCT: SULFAMETHOXAZOLE AND TRIMETHOPRIM
Active Ingredient: SULFAMETHOXAZOLE; TRIMETHOPRIM
Strength: 400MG;80MG
Dosage Form/Route: TABLET;ORAL
Application: N018598 | Product #003
Applicant: FOSUN PHARMA USA INC
Approved: May 19, 1982 | RLD: No | RS: No | Type: DISCN